FAERS Safety Report 10907541 (Version 1)
Quarter: 2015Q1

REPORT INFORMATION
  Report Type: Report from Study
  Country: US (occurrence: US)
  Receive Date: 20150312
  Receipt Date: 20150312
  Transmission Date: 20150721
  Serious: Yes (Other)
  Sender: FDA-Public Use
  Company Number: US-BAYER-2015-013910

PATIENT
  Age: 57 Year
  Sex: Male

DRUGS (2)
  1. NEXAVAR [Suspect]
     Active Substance: SORAFENIB
     Indication: HEPATOCELLULAR CARCINOMA
     Dosage: 200 MG, BID
     Route: 048
     Dates: start: 20150224
  2. NEXAVAR [Suspect]
     Active Substance: SORAFENIB
     Indication: HEPATOCELLULAR CARCINOMA
     Dosage: 400 MG, BID
     Route: 048
     Dates: start: 20150123, end: 20150223

REACTIONS (9)
  - Blister [Recovering/Resolving]
  - Abdominal distension [None]
  - Abdominal discomfort [None]
  - Constipation [None]
  - Abdominal pain [Not Recovered/Not Resolved]
  - Decreased appetite [Not Recovered/Not Resolved]
  - Decreased appetite [Recovering/Resolving]
  - Blood pressure increased [None]
  - Constipation [Recovering/Resolving]

NARRATIVE: CASE EVENT DATE: 20150127
